FAERS Safety Report 17047356 (Version 1)
Quarter: 2019Q4

REPORT INFORMATION
  Report Type: Other
  Country: CN (occurrence: CN)
  Receive Date: 20191119
  Receipt Date: 20191119
  Transmission Date: 20200122
  Serious: Yes (Other)
  Sender: FDA-Public Use
  Company Number: CN-MACLEODS PHARMACEUTICALS US LTD-MAC2019023745

PATIENT

DRUGS (1)
  1. TENOFOVIR 300MG [Suspect]
     Active Substance: TENOFOVIR DISOPROXIL
     Indication: HEPATITIS B
     Dosage: 1 COURSE OF 300 MG ORALLY ONCE DAILY WITH EARLIEST EXPOSURE IN THE FIRST TRIMESTER
     Route: 048
     Dates: start: 20190902

REACTIONS (3)
  - Maternal exposure during pregnancy [Unknown]
  - Stillbirth [Unknown]
  - Premature rupture of membranes [Unknown]

NARRATIVE: CASE EVENT DATE: 20191010
